FAERS Safety Report 8608423-1 (Version None)
Quarter: 2012Q3

REPORT INFORMATION
  Report Type: 
  Country: None (occurrence: None)
  Receive Date: 20120821
  Receipt Date: 20120821
  Transmission Date: 20120928
  Serious: Yes (Death)
  Sender: FDA-Public Use
  Company Number: SE-ROCHE-1093115

PATIENT
  Age: 76 Year
  Sex: Female

DRUGS (7)
  1. INOLAXOL [Concomitant]
  2. ACETAMINOPHEN [Concomitant]
  3. LOSARTAN POTASSIUM [Concomitant]
  4. PREDNISOLONE [Concomitant]
  5. ROACTEMRA [Suspect]
     Indication: RHEUMATOID ARTHRITIS
     Dosage: 20MG/ML, DOSE: 800 MGM
     Route: 042
     Dates: start: 20120229
  6. FUROSEMIDE [Concomitant]
  7. CALCICHEW D3 FORTE [Concomitant]

REACTIONS (1)
  - CARDIAC ARREST [None]
